FAERS Safety Report 9276879 (Version 2)
Quarter: 2013Q3

REPORT INFORMATION
  Report Type: Report from Study
  Country: FR (occurrence: FR)
  Receive Date: 20130507
  Receipt Date: 20130724
  Transmission Date: 20140515
  Serious: Yes (Death, Life-Threatening, Hospitalization)
  Sender: FDA-Public Use
  Company Number: FR-BAXTER-2013BAX016110

PATIENT
  Age: 77 Year
  Sex: Female
  Weight: 70 kg

DRUGS (11)
  1. ENDOXAN 2000 MG, LYOPHILISAT POUR SOLUTION INJECTABLE [Suspect]
     Indication: BREAST CANCER
     Route: 065
  2. RHUPH20 [Suspect]
     Indication: BREAST CANCER
     Route: 058
     Dates: start: 20121030
  3. RHUPH20 [Suspect]
     Route: 058
     Dates: start: 20130103
  4. DOCETAXEL [Suspect]
     Indication: BREAST CANCER
     Route: 065
  5. TRASTUZUMAB [Suspect]
     Indication: BREAST CANCER
     Route: 058
     Dates: start: 20121030
  6. TRASTUZUMAB [Suspect]
     Route: 058
     Dates: start: 20130103
  7. PEGFILGRASTIM [Concomitant]
     Indication: NEUTROPENIA
     Route: 065
     Dates: start: 20121221
  8. PREDNISOLONE SODIUM METASULFOBENZOATE [Concomitant]
     Indication: PRODUCT USED FOR UNKNOWN INDICATION
     Route: 065
     Dates: start: 20130103
  9. CALENDULA [Concomitant]
     Indication: PRODUCT USED FOR UNKNOWN INDICATION
     Route: 065
     Dates: start: 20130103
  10. TAHOR [Concomitant]
     Indication: PRODUCT USED FOR UNKNOWN INDICATION
     Route: 065
  11. RILMENIDINE [Concomitant]
     Indication: PRODUCT USED FOR UNKNOWN INDICATION
     Route: 065

REACTIONS (1)
  - Neutropenic sepsis [Fatal]
